FAERS Safety Report 10788273 (Version 3)
Quarter: 2015Q3

REPORT INFORMATION
  Report Type: Spontaneous
  Country: CA (occurrence: CA)
  Receive Date: 20150212
  Receipt Date: 20150806
  Transmission Date: 20151125
  Serious: Yes (Other)
  Sender: FDA-Public Use
  Company Number: CA-ROCHE-1536924

PATIENT

DRUGS (1)
  1. CLONAZEPAM. [Suspect]
     Active Substance: CLONAZEPAM
     Indication: PANIC DISORDER
     Route: 065

REACTIONS (4)
  - Weight loss poor [Unknown]
  - Depression [Unknown]
  - Withdrawal syndrome [Unknown]
  - Pain [Unknown]
